FAERS Safety Report 6993995-3 (Version None)
Quarter: 2010Q3

REPORT INFORMATION
  Report Type: 
  Country: None (occurrence: None)
  Receive Date: 20100917
  Receipt Date: 20071212
  Transmission Date: 20110219
  Serious: Yes (Other)
  Sender: FDA-Public Use
  Company Number: US-ASTRAZENECA-2006UW27527

PATIENT
  Age: 600 Month
  Sex: Female
  Weight: 44 kg

DRUGS (10)
  1. SEROQUEL [Suspect]
     Indication: BIPOLAR DISORDER
     Route: 048
     Dates: start: 20030626
  2. SEROQUEL [Suspect]
     Route: 048
     Dates: start: 20030708
  3. SEROQUEL [Suspect]
     Dosage: 300 MG AM AND 900 MG PM
     Route: 048
     Dates: start: 20071221
  4. LORAZEPAM [Concomitant]
     Dates: start: 20030709
  5. DEPAKOTE [Concomitant]
     Dates: start: 20080801
  6. HYDROCODONE BITARTRATE AND ACETAMINOPHEN [Concomitant]
     Dates: start: 20031107
  7. CLARINEX [Concomitant]
     Dates: start: 20031113
  8. LITHIUM CARBONATE [Concomitant]
     Dates: start: 20071101
  9. SYNTHROID [Concomitant]
     Dates: start: 19981116
  10. DILANTIN [Concomitant]
     Dates: start: 19981116

REACTIONS (1)
  - PANCREATITIS [None]
